FAERS Safety Report 18630111 (Version 1)
Quarter: 2020Q4

REPORT INFORMATION
  Report Type: Spontaneous
  Country: US (occurrence: US)
  Receive Date: 20201217
  Receipt Date: 20201217
  Transmission Date: 20210114
  Serious: No
  Sender: FDA-Public Use
  Company Number: US-PFIZER INC-2020499098

PATIENT
  Age: 21 Year
  Sex: Female

DRUGS (1)
  1. SIROLIMUS. [Suspect]
     Active Substance: SIROLIMUS
     Dosage: UNK

REACTIONS (5)
  - Rash [Unknown]
  - Headache [Unknown]
  - Condition aggravated [Unknown]
  - Respiratory symptom [Unknown]
  - Contusion [Not Recovered/Not Resolved]
